FAERS Safety Report 7512492-X (Version None)
Quarter: 2011Q2

REPORT INFORMATION
  Report Type: 
  Country: None (occurrence: None)
  Receive Date: 20110531
  Receipt Date: 20110523
  Transmission Date: 20111010
  Serious: Yes (Hospitalization)
  Sender: FDA-Public Use
  Company Number: PK-ROCHE-778850

PATIENT
  Age: 36 Year
  Sex: Male
  Weight: 65 kg

DRUGS (4)
  1. BONIVA [Suspect]
     Indication: OSTEOPOROSIS
     Route: 042
     Dates: start: 20110514
  2. METFORMIN HCL [Concomitant]
     Indication: DIABETES MELLITUS
  3. GLIMEPIRIDE [Concomitant]
     Indication: DIABETES MELLITUS
  4. RAMIPRIL [Concomitant]
     Indication: HYPERTENSION

REACTIONS (1)
  - EPIDERMOLYSIS [None]
